FAERS Safety Report 8769630 (Version 1)
Quarter: 2012Q4

REPORT INFORMATION
  Report Type: 
  Country: US (occurrence: US)
  Receive Date: 20120906
  Receipt Date: 20120906
  Transmission Date: 20130627
  Serious: No
  Sender: FDA-Public Use
  Company Number: US-B.I. PHARMACEUTICALS,INC./RIDGEFIELD-2012-BP-21118BP

PATIENT
  Sex: Female

DRUGS (6)
  1. AGGRENOX [Suspect]
     Indication: CARDIAC OPERATION
     Dosage: Strength: 25 mg / 200 mg; Daily Dose: 50 mg/ 400 mg
     Route: 048
     Dates: start: 2006
  2. SYNTHROID [Concomitant]
     Indication: HYPOTHYROIDISM
     Dosage: 0.88 mcg
     Route: 048
  3. HCTZ [Concomitant]
     Indication: FLUID RETENTION
     Dosage: 25 mg
     Route: 048
  4. DIOVAN [Concomitant]
     Indication: HYPERTENSION
     Dosage: 80 mg
     Route: 048
  5. ATORVASTATIN [Concomitant]
     Indication: BLOOD CHOLESTEROL INCREASED
     Dosage: 10 mg
     Route: 048
  6. B COMPLEX [Concomitant]
     Indication: VITAMIN B COMPLEX DEFICIENCY
     Route: 048

REACTIONS (4)
  - Sinusitis [Not Recovered/Not Resolved]
  - Urticaria [Not Recovered/Not Resolved]
  - Pruritus [Not Recovered/Not Resolved]
  - Urticaria [Not Recovered/Not Resolved]
